FAERS Safety Report 19617622 (Version 1)
Quarter: 2021Q3

REPORT INFORMATION
  Report Type: Spontaneous
  Country: US (occurrence: US)
  Receive Date: 20210727
  Receipt Date: 20210727
  Transmission Date: 20211014
  Serious: No
  Sender: FDA-Public Use
  Company Number: US-ABBVIE-21K-163-3919175-00

PATIENT
  Sex: Female

DRUGS (1)
  1. ORILISSA [Suspect]
     Active Substance: ELAGOLIX SODIUM
     Indication: ENDOMETRIOSIS
     Route: 048
     Dates: start: 201904

REACTIONS (16)
  - Palpitations [Unknown]
  - Abdominal pain [Unknown]
  - Irritability [Unknown]
  - Abnormal dreams [Unknown]
  - Anxiety [Unknown]
  - Weight increased [Unknown]
  - Mood altered [Unknown]
  - Night sweats [Unknown]
  - Arthralgia [Unknown]
  - Insomnia [Unknown]
  - Sexual dysfunction [Unknown]
  - Back pain [Unknown]
  - Restlessness [Unknown]
  - Endometriosis [Unknown]
  - Headache [Not Recovered/Not Resolved]
  - Drug ineffective [Unknown]

NARRATIVE: CASE EVENT DATE: 2019
